FAERS Safety Report 14243263 (Version 1)
Quarter: 2017Q4

REPORT INFORMATION
  Report Type: Spontaneous
  Country: US (occurrence: US)
  Receive Date: 20171201
  Receipt Date: 20171201
  Transmission Date: 20180321
  Serious: No
  Sender: FDA-Public Use
  Company Number: US-TEVA-800898ACC

PATIENT
  Sex: Female

DRUGS (1)
  1. CRYSELLE [Suspect]
     Active Substance: ETHINYL ESTRADIOL\NORGESTREL
     Indication: MUSCLE SPASMS
     Dosage: 0.3 MG/0.03 MG

REACTIONS (3)
  - Somnolence [None]
  - Inappropriate schedule of drug administration [Unknown]
  - Drug prescribing error [Unknown]

NARRATIVE: CASE EVENT DATE: 20170828
